FAERS Safety Report 6672633-3 (Version None)
Quarter: 2010Q2

REPORT INFORMATION
  Report Type: 
  Country: None (occurrence: None)
  Receive Date: 20100406
  Receipt Date: 20100322
  Transmission Date: 20101027
  Serious: Yes (Hospitalization)
  Sender: FDA-Public Use
  Company Number: 009239

PATIENT
  Sex: Female

DRUGS (1)
  1. CIMZIA [Suspect]
     Indication: CROHN'S DISEASE
     Dosage: 400MG SUBCUTANEOUS
     Route: 058
     Dates: start: 20090810

REACTIONS (3)
  - ASTHENIA [None]
  - DEPRESSION [None]
  - FATIGUE [None]
